FAERS Safety Report 6217930-0 (Version None)
Quarter: 2009Q2

REPORT INFORMATION
  Report Type: 
  Country: None (occurrence: None)
  Receive Date: 20090604
  Receipt Date: 20090526
  Transmission Date: 20091009
  Serious: Yes (Hospitalization)
  Sender: FDA-Public Use
  Company Number: 1000006477

PATIENT
  Age: 11 Day
  Sex: Male

DRUGS (3)
  1. INDOMETHACIN [Suspect]
     Indication: BARTTER'S SYNDROME
     Dosage: 1 MG/KG/DAY (1 IN 1 D), TRANSPLACENTAL 1MG/KG/DAY (1 IN 1 D)
     Route: 064
  2. INDOMETHACIN [Suspect]
     Indication: BARTTER'S SYNDROME
     Dosage: 1 MG/KG/DAY (1 IN 1 D), TRANSPLACENTAL 1MG/KG/DAY (1 IN 1 D)
     Route: 064
  3. INDOMETHACIN [Suspect]
     Indication: BARTTER'S SYNDROME
     Dosage: 1 MG/KG/DAY (1 IN 1 D), TRANSPLACENTAL 1MG/KG/DAY (1 IN 1 D)
     Route: 064

REACTIONS (3)
  - CAESAREAN SECTION [None]
  - LARGE INTESTINE PERFORATION [None]
  - MATERNAL DRUGS AFFECTING FOETUS [None]
